FAERS Safety Report 6839327-2 (Version None)
Quarter: 2010Q3

REPORT INFORMATION
  Report Type: 
  Country: None (occurrence: None)
  Receive Date: 20100714
  Receipt Date: 20100702
  Transmission Date: 20110219
  Serious: Yes (Hospitalization, Other)
  Sender: FDA-Public Use
  Company Number: PHHY2010JP37700

PATIENT
  Age: 36 Year
  Sex: Male
  Weight: 62 kg

DRUGS (7)
  1. TEGRETOL [Suspect]
     Indication: POST-TRAUMATIC EPILEPSY
     Dosage: 200 MG, BID
     Route: 048
     Dates: start: 20100326, end: 20100503
  2. DEPAKENE [Concomitant]
     Dosage: UNK
     Route: 048
  3. MYSLEE [Concomitant]
     Dosage: UNK
     Route: 048
  4. FOLIAMIN [Concomitant]
     Dosage: UNK
     Route: 048
  5. NOCBIN [Concomitant]
     Dosage: UNK
     Route: 048
     Dates: end: 20100503
  6. MIYA-BM [Concomitant]
     Dosage: UNK
     Route: 048
     Dates: end: 20100503
  7. VITAMEDIN CAPSULE [Concomitant]
     Route: 048

REACTIONS (6)
  - BACTERIAL INFECTION [None]
  - ERYTHEMA MULTIFORME [None]
  - LYMPHADENOPATHY [None]
  - NASOPHARYNGITIS [None]
  - PYREXIA [None]
  - URTICARIA [None]
